FAERS Safety Report 9840709 (Version 1)
Quarter: 2013Q4

REPORT INFORMATION
  Report Type: Spontaneous
  Country: US (occurrence: None)
  Receive Date: 20131211
  Receipt Date: 20131211
  Transmission Date: 20140711
  Serious: Yes (Other)
  Sender: FDA-Public Use
  Company Number: SPV1-2009-01437

PATIENT
  Age: 10 Year
  Sex: 0
  Weight: 20.6 kg

DRUGS (4)
  1. ELAPRASE [Suspect]
     Indication: MUCOPOLYSACCHARIDOSIS II
     Dosage: 1X/WEEK
     Route: 041
     Dates: start: 20070613
  2. PARACETAMOL [Concomitant]
  3. LORTADINE [Concomitant]
  4. FLUTICASONE [Concomitant]

REACTIONS (2)
  - Urticaria [None]
  - Infusion related reaction [None]
